FAERS Safety Report 16437441 (Version 8)
Quarter: 2022Q3

REPORT INFORMATION
  Report Type: Report from Study
  Country: US (occurrence: None)
  Receive Date: 20190615
  Receipt Date: 20220821
  Transmission Date: 20221026
  Serious: Yes (Hospitalization)
  Sender: FDA-Public Use
  Company Number: US-ROCHE-2334672

PATIENT
  Age: 62 Year
  Sex: Male
  Weight: 103.1 kg

DRUGS (28)
  1. POLATUZUMAB VEDOTIN [Suspect]
     Active Substance: POLATUZUMAB VEDOTIN
     Indication: Diffuse large B-cell lymphoma
     Dosage: DATE OF MOST RECENT DOSE OF POLATUZUMAB VEDOTIN PRIOR TO AE ONSET: 30/MAY/2019 (180.2)
     Route: 042
     Dates: start: 20190530
  2. VENETOCLAX [Suspect]
     Active Substance: VENETOCLAX
     Indication: Diffuse large B-cell lymphoma
     Dosage: DATE OF MOST RECENT DOSE OF VENETOCLAX PRIOR TO AE ONSET: 06/JUN/2019 (800 MG)
     Route: 048
     Dates: start: 20190530
  3. RITUXIMAB [Suspect]
     Active Substance: RITUXIMAB
     Indication: Diffuse large B-cell lymphoma
     Dosage: DATE OF MOST RECENT DOSE OF RITUXIMAB PRIOR TO AE ONSET: 30/MAY/2019 (821 MG)?ON DAY 1 OF CYCLES 1 T
     Route: 041
     Dates: start: 20190530
  4. ALLOPURINOL [Concomitant]
     Active Substance: ALLOPURINOL
     Dosage: URIC ACID LEVEL MAINTENANCE
     Dates: start: 20190524
  5. ACETAMINOPHEN [Concomitant]
     Active Substance: ACETAMINOPHEN
     Indication: Pain
     Dates: start: 20190530
  6. ASPIRIN [Concomitant]
     Active Substance: ASPIRIN
     Dosage: CV HEALTH
  7. BRIMONIDINE [Concomitant]
     Active Substance: BRIMONIDINE TARTRATE
     Indication: Eye irritation
  8. DORZOLAMIDE\TIMOLOL [Concomitant]
     Active Substance: DORZOLAMIDE\TIMOLOL
     Indication: Retinitis
  9. FOLIC ACID [Concomitant]
     Active Substance: FOLIC ACID
     Dosage: SUPPLEMENT
  10. LANTUS SOLOSTAR [Concomitant]
     Active Substance: INSULIN GLARGINE
     Indication: Diabetes mellitus
  11. LOSARTAN [Concomitant]
     Active Substance: LOSARTAN
     Indication: Hypertension
     Dates: start: 20181130
  12. MAGNESIUM CARBONATE [Concomitant]
     Active Substance: MAGNESIUM CARBONATE
     Indication: Hypertension
     Dosage: MAGNESIUM SUPPLEMENT
  13. METFORMIN [Concomitant]
     Active Substance: METFORMIN HYDROCHLORIDE
     Indication: Diabetes mellitus
  14. PREDNISOLONE ACETATE [Concomitant]
     Active Substance: PREDNISOLONE ACETATE
     Indication: Retinitis
     Dates: start: 20180810
  15. PROCHLORPERAZINE [Concomitant]
     Active Substance: PROCHLORPERAZINE
     Indication: Nausea
  16. PROCHLORPERAZINE [Concomitant]
     Active Substance: PROCHLORPERAZINE
     Indication: Vomiting
  17. ROSUVASTATIN [Concomitant]
     Active Substance: ROSUVASTATIN
     Dosage: CHOLESTEROL AND LIPID CONTROL
  18. SITAGLIPTIN [Concomitant]
     Active Substance: SITAGLIPTIN
     Indication: Type 2 diabetes mellitus
  19. VENLAFAXINE [Concomitant]
     Active Substance: VENLAFAXINE HYDROCHLORIDE
     Indication: Depression
  20. SALINE [Concomitant]
     Active Substance: SODIUM CHLORIDE
  21. DOXYCYCLINE HYCLATE [Concomitant]
     Active Substance: DOXYCYCLINE HYCLATE
     Indication: Respiratory distress
     Dates: start: 20190618, end: 20190623
  22. GRANIX [Concomitant]
     Active Substance: TBO-FILGRASTIM
     Dates: start: 20190620
  23. VALCYTE [Concomitant]
     Active Substance: VALGANCICLOVIR HYDROCHLORIDE
     Indication: Cytomegalovirus chorioretinitis
     Dates: start: 20190116, end: 20190610
  24. MYCELEX [Concomitant]
     Active Substance: CLOTRIMAZOLE
     Indication: Infection
     Dates: start: 20190611, end: 20190618
  25. PREVYMIS [Concomitant]
     Active Substance: LETERMOVIR
     Indication: Cytomegalovirus chorioretinitis
     Dates: start: 20190611, end: 20190621
  26. VANCOCIN [Concomitant]
     Active Substance: VANCOMYCIN HYDROCHLORIDE
     Indication: Infection
     Dates: start: 20190612, end: 20190613
  27. POTASSIUM CHLORIDE [Concomitant]
     Active Substance: POTASSIUM CHLORIDE
     Dates: start: 20190608
  28. FILGRASTIM [Concomitant]
     Active Substance: FILGRASTIM
     Indication: Neutropenia
     Dates: start: 20190530

REACTIONS (2)
  - Acute kidney injury [Recovered/Resolved]
  - Pneumonia [Recovered/Resolved]

NARRATIVE: CASE EVENT DATE: 20190607
